FAERS Safety Report 8501592-3 (Version None)
Quarter: 2012Q3

REPORT INFORMATION
  Report Type: 
  Country: None (occurrence: None)
  Receive Date: 20120710
  Receipt Date: 20120703
  Transmission Date: 20120928
  Serious: Yes (Other)
  Sender: FDA-Public Use
  Company Number: DE-ROCHE-1082548

PATIENT
  Age: 80 Year
  Sex: Female

DRUGS (3)
  1. BONIVA [Suspect]
     Indication: PRODUCT USED FOR UNKNOWN INDICATION
     Route: 042
  2. DEXAMETHASONE SODIUM PHOSPHATE [Interacting]
     Indication: PRODUCT USED FOR UNKNOWN INDICATION
     Route: 014
  3. DICLOFENAC SODIUM [Interacting]
     Indication: PRODUCT USED FOR UNKNOWN INDICATION
     Route: 014

REACTIONS (8)
  - CHILLS [None]
  - HYPERTENSION [None]
  - ANXIETY [None]
  - PARTIAL SEIZURES [None]
  - DRUG INTERACTION [None]
  - EPILEPTIC AURA [None]
  - BONE PAIN [None]
  - NAUSEA [None]
